FAERS Safety Report 5446990-X (Version None)
Quarter: 2007Q3

REPORT INFORMATION
  Report Type: 
  Country: None (occurrence: None)
  Receive Date: 20070803
  Receipt Date: 20070403
  Transmission Date: 20080115
  Serious: Yes (Other)
  Sender: FDA-Public Use
  Company Number: US-JNJFOC-20070400959

PATIENT
  Age: 36 Month
  Sex: Male
  Weight: 16.7377 kg

DRUGS (1)
  1. ACETAMINOPHEN [Suspect]
     Indication: PYREXIA
     Dosage: 160 MG, TWICE, THEN POSSIBLY 3/4 OF THE BOTTLE; ORAL
     Route: 048
     Dates: start: 20070402, end: 20070402

REACTIONS (2)
  - ACCIDENTAL DRUG INTAKE BY CHILD [None]
  - ACCIDENTAL OVERDOSE [None]
